FAERS Safety Report 10704166 (Version 1)
Quarter: 2015Q1

REPORT INFORMATION
  Report Type: Spontaneous
  Country: DK (occurrence: DK)
  Receive Date: 20150112
  Receipt Date: 20150112
  Transmission Date: 20150721
  Serious: Yes (Other)
  Sender: FDA-Public Use
  Company Number: DK-ACTAVIS-2014-28116

PATIENT
  Sex: Female

DRUGS (4)
  1. ACETYLCYSTEINE SANDOZ [Suspect]
     Active Substance: ACETYLCYSTEINE
     Indication: PRODUCTIVE COUGH
     Dosage: 600 MG, DAILY
     Route: 048
     Dates: end: 2014
  2. PINEX [Suspect]
     Active Substance: ACETAMINOPHEN
     Indication: MALAISE
     Dosage: 500 MG, BID
     Route: 048
  3. IBUPROFEN. [Suspect]
     Active Substance: IBUPROFEN
     Indication: MALAISE
     Dosage: 200 MG, UNKNOWN
     Route: 065
  4. ACETYLCYSTEINE SANDOZ [Suspect]
     Active Substance: ACETYLCYSTEINE
     Indication: INFLUENZA

REACTIONS (7)
  - Urticaria [Recovered/Resolved]
  - Swollen tongue [Recovered/Resolved]
  - Pharyngitis [Recovered/Resolved]
  - Stomatitis [Recovered/Resolved]
  - Heart rate increased [Recovered/Resolved]
  - Paraesthesia oral [Recovered/Resolved]
  - Respiratory distress [Recovered/Resolved]
